FAERS Safety Report 10128417 (Version 1)
Quarter: 2014Q2

REPORT INFORMATION
  Report Type: Spontaneous
  Country: GB (occurrence: GB)
  Receive Date: 20140428
  Receipt Date: 20140428
  Transmission Date: 20141212
  Serious: Yes (Other)
  Sender: FDA-Public Use
  Company Number: GB-BRISTOL-MYERS SQUIBB COMPANY-20673786

PATIENT
  Sex: Female

DRUGS (1)
  1. GLUCOPHAGE TABS [Suspect]
     Route: 048

REACTIONS (1)
  - Adenocarcinoma [Unknown]
